FAERS Safety Report 4692483-7 (Version None)
Quarter: 2005Q2

REPORT INFORMATION
  Report Type: 
  Country: None (occurrence: None)
  Receive Date: 20050613
  Receipt Date: 20050331
  Transmission Date: 20051028
  Serious: No
  Sender: FDA-Public Use
  Company Number: 2005-00326

PATIENT
  Age: 46 Year
  Sex: Male
  Weight: 124.3 kg

DRUGS (7)
  1. VELCADE [Suspect]
     Indication: MANTLE CELL LYMPHOMA
     Dosage: 3.00 MG, IV BOLUS
     Route: 040
     Dates: start: 20050110
  2. LISINOPRIL [Concomitant]
  3. LASIX [Concomitant]
  4. ZOCOR [Concomitant]
  5. COREG [Concomitant]
  6. ALLOPURINOL [Concomitant]
  7. DIGOXIN [Concomitant]

REACTIONS (2)
  - RETINAL HAEMORRHAGE [None]
  - VISION BLURRED [None]
